FAERS Safety Report 9617953 (Version 1)
Quarter: 2013Q4

REPORT INFORMATION
  Report Type: Spontaneous
  Country: TR (occurrence: TR)
  Receive Date: 20131011
  Receipt Date: 20131011
  Transmission Date: 20140711
  Serious: Yes (Other)
  Sender: FDA-Public Use
  Company Number: TR-MERCK-1310TUR004183

PATIENT
  Age: 27 Year
  Sex: Female

DRUGS (7)
  1. CASPOFUNGIN ACETATE [Suspect]
     Indication: CANDIDA INFECTION
     Dosage: 50 MG, QD
  2. PIPERACILLIN SODIUM (+) TAZOBACTAM SODIUM [Suspect]
     Dosage: 3 X 4.5 MG /DAYS
  3. CYTARABINE (+) FLUDARABINE PHOSPHATE [Concomitant]
     Dosage: ON DAYS 83-88 OFADMISSION
  4. CIPROFLOXACIN [Concomitant]
     Dosage: (2X400 MG/DAY)
  5. AMIKACIN [Concomitant]
     Dosage: (1X1 G/DAY)
  6. AMPHOTERICIN B [Concomitant]
     Dosage: LIPOSOMAL
  7. VORICONAZOLE [Concomitant]

REACTIONS (1)
  - Convulsion [Recovered/Resolved]
